FAERS Safety Report 5399926-4 (Version None)
Quarter: 2007Q3

REPORT INFORMATION
  Report Type: 
  Country: None (occurrence: None)
  Receive Date: 20070726
  Receipt Date: 20070726
  Transmission Date: 20080115
  Serious: Yes (Hospitalization)
  Sender: FDA-Public Use
  Company Number: None

PATIENT
  Sex: Male
  Weight: 54.2 kg

DRUGS (9)
  1. OXANDRIN [Suspect]
     Indication: WEIGHT DECREASED
     Dosage: 10MG BID PO
     Route: 048
     Dates: start: 20070222, end: 20070517
  2. NIFEREX [Concomitant]
  3. ALDACTONE [Concomitant]
  4. PHENERGAN HCL [Concomitant]
  5. PRILOSEC [Concomitant]
  6. VITAMIN CAP [Concomitant]
  7. REGLAN [Concomitant]
  8. LASIX [Concomitant]
  9. IMODIUM [Concomitant]

REACTIONS (3)
  - ASCITES [None]
  - DISEASE PROGRESSION [None]
  - TRANSIENT ISCHAEMIC ATTACK [None]
